FAERS Safety Report 4575491-6 (Version None)
Quarter: 2005Q1

REPORT INFORMATION
  Report Type: 
  Country: None (occurrence: None)
  Receive Date: 20050131
  Receipt Date: 20050131
  Transmission Date: 20050727
  Serious: Yes (Life-Threatening)
  Sender: FDA-Public Use
  Company Number: None

PATIENT
  Sex: Male
  Weight: 99.7913 kg

DRUGS (1)
  1. CLINDAMYCIN HCL [Suspect]
     Indication: TOOTH INFECTION
     Dosage: 1 EVERY   6 HOURS   ORAL
     Route: 048
     Dates: start: 20050107, end: 20050109

REACTIONS (3)
  - DIARRHOEA [None]
  - MEDICATION ERROR [None]
  - THERAPY NON-RESPONDER [None]
